FAERS Safety Report 6744206-5 (Version None)
Quarter: 2010Q2

REPORT INFORMATION
  Report Type: 
  Country: None (occurrence: None)
  Receive Date: 20100527
  Receipt Date: 20100519
  Transmission Date: 20101027
  Serious: Yes (Hospitalization)
  Sender: FDA-Public Use
  Company Number: GXKR2010JP04909

PATIENT
  Age: 79 Year
  Sex: Female
  Weight: 44 kg

DRUGS (8)
  1. FLUOROURACIL [Suspect]
     Indication: COLON CANCER METASTATIC
     Dosage: 400 MG/M2 RAPID IV INFUSION (DAY 1), 2400 MG/M2 CONTINUOUS IV INFUSION (46H, DAY 1-2) EVERY 2 WEEKS
  2. FLUOROURACIL [Suspect]
     Dosage: CONTINUOS IV INFUSION DOSE DECREASED FROM 2400 MG/M2 TO 2000 MG/M2
  3. FLUOROURACIL [Suspect]
     Dosage: CONTINUOUS IV INFUSION DOSE DECREASED FROM 2000 MG/M2 TO 1200 MG/M2
  4. OXALIPLATIN [Concomitant]
     Indication: COLON CANCER METASTATIC
     Dosage: 85 MG/M2 (DAY 1)
     Route: 065
  5. OXALIPLATIN [Concomitant]
     Dosage: THREE MORE COURSES
     Route: 065
  6. CALCIUM FOLINATE [Concomitant]
     Indication: COLON CANCER METASTATIC
     Dosage: 200 MG/M2 (DAY 1, 2)
     Route: 065
  7. CALCIUM FOLINATE [Concomitant]
     Dosage: THREE MORE COURSES
     Route: 065
  8. LAXATIVES [Concomitant]
     Indication: CONSTIPATION PROPHYLAXIS

REACTIONS (3)
  - ALTERED STATE OF CONSCIOUSNESS [None]
  - HEPATIC ENCEPHALOPATHY [None]
  - HYPERAMMONAEMIA [None]
